FAERS Safety Report 10438730 (Version 2)
Quarter: 2014Q3

REPORT INFORMATION
  Report Type: Report from Study
  Country: ES (occurrence: ES)
  Receive Date: 20140908
  Receipt Date: 20140908
  Transmission Date: 20150326
  Serious: Yes (Other)
  Sender: FDA-Public Use
  Company Number: ES-VERTEX PHARMACEUTICALS-2014-003544

PATIENT

DRUGS (1)
  1. TELAPREVIR [Suspect]
     Active Substance: TELAPREVIR
     Indication: HEPATITIS C
     Route: 048

REACTIONS (5)
  - Hepatitis C [Unknown]
  - Rash [Unknown]
  - Neutropenia [Unknown]
  - Anorectal disorder [Unknown]
  - Anaemia [Unknown]
